FAERS Safety Report 4752320-9 (Version None)
Quarter: 2005Q3

REPORT INFORMATION
  Report Type: 
  Country: None (occurrence: None)
  Receive Date: 20050825
  Receipt Date: 20041203
  Transmission Date: 20060218
  Serious: Yes (Other)
  Sender: FDA-Public Use
  Company Number: GB-GLAXOSMITHKLINE-B0359516A

PATIENT
  Sex: Male

DRUGS (1)
  1. SEROXAT [Suspect]
     Dosage: 20MG UNKNOWN
     Route: 065

REACTIONS (6)
  - AGGRESSION [None]
  - COMPLETED SUICIDE [None]
  - DRUG WITHDRAWAL SYNDROME [None]
  - EMOTIONAL DISTRESS [None]
  - ILL-DEFINED DISORDER [None]
  - ROAD TRAFFIC ACCIDENT [None]
